FAERS Safety Report 4368597-8 (Version None)
Quarter: 2004Q2

REPORT INFORMATION
  Report Type: 
  Country: None (occurrence: None)
  Receive Date: 20040602
  Receipt Date: 20040512
  Transmission Date: 20050107
  Serious: Yes (Hospitalization)
  Sender: FDA-Public Use
  Company Number: 04P-167-0260644-00

PATIENT
  Age: 62 Year
  Sex: Female
  Weight: 73 kg

DRUGS (9)
  1. HUMIRA [Suspect]
     Indication: RHEUMATOID ARTHRITIS
     Dosage: 40 MG, 1 IN 2 WK, SUBCUTANEOUS
     Route: 058
     Dates: start: 20030601
  2. METHOTREXATE [Concomitant]
  3. CALCIUM CARBONATE [Concomitant]
  4. PIROXICAM [Concomitant]
  5. LISINOPRIL [Concomitant]
  6. FOLIC ACID [Concomitant]
  7. BENDROFLUMETHIAZIDE [Concomitant]
  8. LANSOPRAZOLE [Concomitant]
  9. PROVELLA-14 [Concomitant]

REACTIONS (1)
  - SKIN ULCER [None]
